FAERS Safety Report 4293622-2 (Version None)
Quarter: 2004Q1

REPORT INFORMATION
  Report Type: 
  Country: None (occurrence: None)
  Receive Date: 20040211
  Receipt Date: 20040122
  Transmission Date: 20041129
  Serious: Yes (Life-Threatening, Other)
  Sender: FDA-Public Use
  Company Number: USA031254896

PATIENT
  Age: 58 Year
  Sex: Male
  Weight: 73 kg

DRUGS (7)
  1. FORTEO [Suspect]
     Indication: BONE DISORDER
     Dosage: 20 UG/DAY
     Dates: start: 20031212
  2. FORTEO [Suspect]
     Indication: SPINAL DISORDER
     Dosage: 20 UG/DAY
     Dates: start: 20031212
  3. OXYCODONE HCL [Concomitant]
  4. PERCOCET [Concomitant]
  5. NEURONTIN [Concomitant]
  6. SOMA [Concomitant]
  7. .. [Suspect]

REACTIONS (14)
  - ASTHENIA [None]
  - BACK PAIN [None]
  - CHILLS [None]
  - DYSKINESIA [None]
  - FATIGUE [None]
  - FEAR [None]
  - FEELING ABNORMAL [None]
  - MUSCLE SPASMS [None]
  - NERVOUS SYSTEM DISORDER [None]
  - NEURALGIA [None]
  - PAIN IN EXTREMITY [None]
  - SCIATICA [None]
  - SUICIDAL IDEATION [None]
  - TREMOR [None]
